FAERS Safety Report 9182773 (Version 1)
Quarter: 2012Q4

REPORT INFORMATION
  Report Type: 
  Country: JP (occurrence: JP)
  Receive Date: 20121030
  Receipt Date: 20121030
  Transmission Date: 20130627
  Serious: Yes (Death, Other)
  Sender: FDA-Public Use
  Company Number: PHHY2012JP097159

PATIENT
  Sex: Male

DRUGS (4)
  1. SIMULECT [Suspect]
     Indication: RENAL TRANSPLANT
     Route: 042
     Dates: start: 20111029
  2. GRACEPTOR [Concomitant]
     Indication: RENAL TRANSPLANT
     Route: 048
  3. ADRENAL CORTEX PREPARATIONS [Concomitant]
     Indication: RENAL TRANSPLANT
  4. CELLCEPT [Concomitant]
     Indication: RENAL TRANSPLANT

REACTIONS (2)
  - Pulmonary embolism [Fatal]
  - Cardio-respiratory arrest [Unknown]
